FAERS Safety Report 25724175 (Version 1)
Quarter: 2025Q3

REPORT INFORMATION
  Report Type: Spontaneous
  Country: US (occurrence: US)
  Receive Date: 20250826
  Receipt Date: 20250826
  Transmission Date: 20251021
  Serious: No
  Sender: SANOFI AVENTIS
  Company Number: US-SA-2025SA251405

PATIENT
  Age: 34 Year
  Sex: Male

DRUGS (10)
  1. DUPIXENT [Suspect]
     Active Substance: DUPILUMAB
     Indication: Dermatitis atopic
     Route: 058
     Dates: start: 20250703, end: 20250703
  2. ABILIFY MAINTENA [Concomitant]
     Active Substance: ARIPIPRAZOLE
  3. ADZENYS XR-ODT [Concomitant]
     Active Substance: AMPHETAMINE
  4. ALPRAZOLAM [Concomitant]
     Active Substance: ALPRAZOLAM
  5. APLENZIN [Concomitant]
     Active Substance: BUPROPION HYDROBROMIDE
  6. APLENZIN [Concomitant]
     Active Substance: BUPROPION HYDROBROMIDE
  7. APLENZIN [Concomitant]
     Active Substance: BUPROPION HYDROBROMIDE
  8. AUVELITY [Concomitant]
     Active Substance: BUPROPION HYDROCHLORIDE\DEXTROMETHORPHAN HYDROBROMIDE
  9. CAPLYTA [Concomitant]
     Active Substance: LUMATEPERONE
  10. CLONAZEPAM [Concomitant]
     Active Substance: CLONAZEPAM

REACTIONS (1)
  - Sleep disorder due to a general medical condition [Unknown]

NARRATIVE: CASE EVENT DATE: 20250701
